FAERS Safety Report 5255777-2 (Version None)
Quarter: 2007Q1

REPORT INFORMATION
  Report Type: 
  Country: None (occurrence: None)
  Receive Date: 20070301
  Receipt Date: 20070222
  Transmission Date: 20070707
  Serious: Yes (Hospitalization)
  Sender: FDA-Public Use
  Company Number: URSO-2007-017

PATIENT
  Age: 80 Year
  Sex: Male

DRUGS (16)
  1. URSO 250 [Suspect]
     Indication: BILIARY CIRRHOSIS PRIMARY
     Dosage: 200MG TID PO
     Route: 048
     Dates: start: 20010813
  2. NIZATIDINE [Concomitant]
  3. LACTULOSE [Concomitant]
  4. ALDACTONE [Concomitant]
  5. MUCOSOLVAN (AMBROXOL HYDROCHLORIDE) [Concomitant]
  6. TALION (BEPOTASTOME BESYLATE) [Concomitant]
  7. TAURINE (AMINOETHYLSULFONIC ACID) [Concomitant]
  8. VIT K CAP [Concomitant]
  9. DEXTROMETHORPHAN HYDROBROMIDE [Concomitant]
  10. FLAVERIC (BENPROPERINE PHOSPHATE) [Concomitant]
  11. LAC B (BIFIDOBACTERIUM) [Concomitant]
  12. ALBUMIN TANNATE [Concomitant]
  13. CLARITHROMYCIN [Concomitant]
  14. ADONA (CARBAZOCHROME SODIUM SULFONATE) [Concomitant]
  15. AMINOLEBAN EN (NUTRITION FOR HEPATIC INSUFFICIENCY) [Concomitant]
  16. POSTERISAN (COLIBACILLUS VACCINE) [Concomitant]

REACTIONS (2)
  - ANAEMIA [None]
  - MELAENA [None]
